FAERS Safety Report 5067240-2 (Version None)
Quarter: 2006Q3

REPORT INFORMATION
  Report Type: 
  Country: None (occurrence: None)
  Receive Date: 20060727
  Receipt Date: 20060714
  Transmission Date: 20061208
  Serious: Yes (Disabling)
  Sender: FDA-Public Use
  Company Number: PHBS2006JP09429

PATIENT
  Age: 31 Year
  Sex: Male

DRUGS (3)
  1. NEORAL [Suspect]
     Indication: RENAL TRANSPLANT
     Dates: start: 19960101
  2. PREDNISOLONE [Suspect]
     Indication: RENAL TRANSPLANT
     Dates: start: 19960101
  3. MYCOPHENOLATE MOFETIL [Suspect]
     Indication: RENAL TRANSPLANT
     Dates: start: 19960101

REACTIONS (5)
  - LYMPHOCYTE MORPHOLOGY ABNORMAL [None]
  - LYMPHOPROLIFERATIVE DISORDER [None]
  - T-CELL LYMPHOMA [None]
  - TONSILLAR DISORDER [None]
  - TUMOUR LYSIS SYNDROME [None]
